FAERS Safety Report 12602206 (Version 1)
Quarter: 2016Q3

REPORT INFORMATION
  Report Type: Spontaneous
  Country: US (occurrence: US)
  Receive Date: 20160728
  Receipt Date: 20160728
  Transmission Date: 20161109
  Serious: No
  Sender: FDA-Public Use
  Company Number: US-PFIZER INC-2016353979

PATIENT
  Sex: Male

DRUGS (1)
  1. EFFEXOR [Suspect]
     Active Substance: VENLAFAXINE HYDROCHLORIDE
     Dosage: UNK
     Dates: end: 201606

REACTIONS (5)
  - Headache [Unknown]
  - Withdrawal syndrome [Unknown]
  - Hypokinesia [Unknown]
  - Insomnia [Unknown]
  - Dizziness [Unknown]

NARRATIVE: CASE EVENT DATE: 2016
